FAERS Safety Report 23195685 (Version 4)
Quarter: 2023Q4

REPORT INFORMATION
  Report Type: Spontaneous
  Country: FR (occurrence: FR)
  Receive Date: 20231117
  Receipt Date: 20231219
  Transmission Date: 20240110
  Serious: Yes (Other)
  Sender: FDA-Public Use
  Company Number: FR-THERAMEX-2023001968

PATIENT
  Age: 78 Year
  Sex: Female

DRUGS (7)
  1. TERIPARATIDE [Suspect]
     Active Substance: TERIPARATIDE
     Indication: Osteoporosis
     Dosage: 20 MCG/80 MCL?PRE-FILLED PEN?EXP.: UU-OCT-2024?TREATMENT STOPPED AS HER NURSE WAS AWAY FOR A WEEK
     Dates: start: 20231002, end: 20231028
  2. TERIPARATIDE [Suspect]
     Active Substance: TERIPARATIDE
     Indication: Osteoporosis
     Dosage: 20 MCG/80 MCL?PRE-FILLED PEN?EXP.: UU-OCT-2024?TREATMENT RESTARTED
     Dates: start: 20231106, end: 20231124
  3. ALBUTEROL [Concomitant]
     Active Substance: ALBUTEROL
     Indication: Asthma
  4. PULMICORT TURBUHALER [Concomitant]
     Active Substance: BUDESONIDE
     Indication: Asthma
  5. BRICANYL [Concomitant]
     Active Substance: TERBUTALINE SULFATE
     Indication: Asthma
  6. THEOPHYLLINE [Concomitant]
     Active Substance: THEOPHYLLINE
     Indication: Asthma
  7. CORTISONE [Concomitant]
     Active Substance: CORTISONE
     Indication: Asthma

REACTIONS (3)
  - Asthma [Not Recovered/Not Resolved]
  - Urinary incontinence [Not Recovered/Not Resolved]
  - Condition aggravated [Not Recovered/Not Resolved]

NARRATIVE: CASE EVENT DATE: 20230101
